FAERS Safety Report 10052114 (Version 1)
Quarter: 2014Q2

REPORT INFORMATION
  Report Type: Spontaneous
  Country: US (occurrence: None)
  Receive Date: 20140401
  Receipt Date: 20140401
  Transmission Date: 20141212
  Serious: No
  Sender: FDA-Public Use
  Company Number: None

PATIENT
  Sex: Female
  Weight: 54.43 kg

DRUGS (1)
  1. METOPROLOL ER [Suspect]
     Indication: HYPERTENSION
     Dosage: OVER TWO YEARS?1/2 TABLET ?DAILY ?MOUTH
     Route: 048

REACTIONS (2)
  - Alopecia [None]
  - Emotional disorder [None]
